FAERS Safety Report 5735043-9 (Version None)
Quarter: 2008Q2

REPORT INFORMATION
  Report Type: 
  Country: None (occurrence: None)
  Receive Date: 20080512
  Receipt Date: 20080429
  Transmission Date: 20081010
  Serious: Yes (Death, Hospitalization)
  Sender: FDA-Public Use
  Company Number: FR-ROCHE-561855

PATIENT
  Sex: Female

DRUGS (16)
  1. RIVOTRIL [Suspect]
     Indication: DRUG USE FOR UNKNOWN INDICATION
     Route: 048
     Dates: end: 20080226
  2. FEMARA [Concomitant]
     Dosage: TAKEN IN MORNING.
     Route: 048
  3. GABAPENTIN [Concomitant]
     Dosage: TAKEN ONE IN MORNNING, ONE AT LUNCH TIME, ONE AT BEDTIME.
     Route: 048
     Dates: end: 20080226
  4. MEPROBAMATE [Concomitant]
     Dosage: DOSAGE REGIMEN REPORTED AS: 0.5 IN MORNING AND 0.5 AT BEDTIME.
     Route: 048
     Dates: end: 20080226
  5. HEMIGOXINE NATIVELLE [Concomitant]
     Dosage: TAKEN IN MORNING.
     Route: 048
  6. OLMIFON [Concomitant]
     Dosage: ONE IN MORNING AND ONE AT BEDTIME.
     Route: 048
     Dates: end: 20080226
  7. VASTAREL [Concomitant]
     Dosage: TAKEN ONE IN MORNING AND ONE AT BEDTIME.
     Dates: start: 20080226
  8. MINI-SINTROM [Concomitant]
     Dosage: TAKEN ONE AT BEDTIME.
     Dates: start: 20080226
  9. ASPIRIN [Concomitant]
     Dosage: ONE DOSE AT LUNCH TIME.
  10. LASILIX [Concomitant]
     Dosage: TAKEN ONE IN MORNING, ONE AT BEDTIME.
  11. AMLOR [Concomitant]
     Dosage: ONE AT BEDTIME.
  12. TRINIPATCH [Concomitant]
     Dosage: TAKEN ONE IN MORNING.
  13. NITRODERM [Concomitant]
  14. DOLIPRANE [Concomitant]
     Dosage: TAKEN TWO IN MORNING, TWO AT LUNCH TIME AND TWO AT BEDTIME.
  15. CACIT D3 [Concomitant]
     Dosage: TAKEN AT LUNCH TIME.
     Dates: end: 20080226
  16. CACIT D3 [Concomitant]
     Dosage: TAKEN AT LUNCH TIME.
     Dates: end: 20080226

REACTIONS (1)
  - COMA [None]
